FAERS Safety Report 16769629 (Version 1)
Quarter: 2019Q3

REPORT INFORMATION
  Report Type: Spontaneous
  Country: CN (occurrence: CN)
  Receive Date: 20190903
  Receipt Date: 20190903
  Transmission Date: 20191005
  Serious: Yes (Other)
  Sender: FDA-Public Use
  Company Number: CN-BAXTER-2019BAX017097

PATIENT
  Age: 52 Year
  Sex: Male
  Weight: 63.5 kg

DRUGS (3)
  1. ENDOXAN [Suspect]
     Active Substance: CYCLOPHOSPHAMIDE
     Indication: EPSTEIN-BARR VIRUS TEST POSITIVE
     Dosage: CYCLOPHOSPHAMIDE DILUTED WITH 0.9 % SODIUM CHLORIDE
     Route: 041
     Dates: start: 20190807, end: 20190809
  2. ENDOXAN [Suspect]
     Active Substance: CYCLOPHOSPHAMIDE
     Indication: DIFFUSE LARGE B-CELL LYMPHOMA
  3. 0.9% SODIUM CHLORIDE INJECTION [Suspect]
     Active Substance: SODIUM CHLORIDE
     Indication: MEDICATION DILUTION
     Dosage: CYCLOPHOSPHAMIDE DILUTED WITH 0.9 % SODIUM CHLORIDE
     Route: 041
     Dates: start: 20190807, end: 20190809

REACTIONS (1)
  - Cystitis haemorrhagic [Recovered/Resolved]

NARRATIVE: CASE EVENT DATE: 20190811
